FAERS Safety Report 10597852 (Version 1)
Quarter: 2014Q4

REPORT INFORMATION
  Report Type: Spontaneous
  Country: US (occurrence: None)
  Receive Date: 20141120
  Receipt Date: 20141120
  Transmission Date: 20150529
  Serious: No
  Sender: FDA-Public Use
  Company Number: None

PATIENT
  Age: 28 Year
  Sex: Female
  Weight: 63.5 kg

DRUGS (1)
  1. PARAGARD T380A [Suspect]
     Active Substance: COPPER

REACTIONS (5)
  - Vomiting [None]
  - Skin odour abnormal [None]
  - Pyrexia [None]
  - Nausea [None]
  - Contusion [None]

NARRATIVE: CASE EVENT DATE: 20141119
